FAERS Safety Report 4831111-4 (Version None)
Quarter: 2005Q4

REPORT INFORMATION
  Report Type: 
  Country: None (occurrence: None)
  Receive Date: 20051114
  Receipt Date: 20051021
  Transmission Date: 20060501
  Serious: Yes (Hospitalization)
  Sender: FDA-Public Use
  Company Number: 2005VX000588

PATIENT
  Age: 79 Year
  Sex: Male

DRUGS (3)
  1. PERMAX [Suspect]
     Indication: PARKINSON'S DISEASE
     Dosage: 500 UG; DAILY; ORAL ; 750 UG; DAILY ORAL
     Route: 048
     Dates: start: 20050901
  2. NEODOPASOL [Concomitant]
  3. RISPERIDONE [Concomitant]

REACTIONS (2)
  - HALLUCINATION, VISUAL [None]
  - NEUROLEPTIC MALIGNANT SYNDROME [None]
